FAERS Safety Report 9033182 (Version 1)
Quarter: 2013Q1

REPORT INFORMATION
  Report Type: Spontaneous
  Country: ES (occurrence: ES)
  Receive Date: 20130128
  Receipt Date: 20130128
  Transmission Date: 20140127
  Serious: Yes (Other)
  Sender: FDA-Public Use
  Company Number: ES-TEVA-382324ISR

PATIENT
  Age: 62 Year
  Sex: Female

DRUGS (4)
  1. AZILECT [Suspect]
     Dosage: 1 MILLIGRAM DAILY;
     Route: 048
     Dates: start: 2012
  2. PAROXETINE [Concomitant]
     Indication: DEPRESSION
     Dosage: 10 MILLIGRAM DAILY;
     Route: 048
     Dates: start: 2012
  3. EMCONCOR COR [Concomitant]
     Indication: SUPRAVENTRICULAR TACHYCARDIA
     Dosage: 5 MILLIGRAM DAILY;
     Route: 048
     Dates: start: 2012
  4. REQUIP PROLIB [Concomitant]
     Dosage: 8 MILLIGRAM DAILY;
     Route: 048
     Dates: start: 2012

REACTIONS (1)
  - Skin cancer [Recovered/Resolved]
